FAERS Safety Report 23507834 (Version 1)
Quarter: 2024Q1

REPORT INFORMATION
  Report Type: Spontaneous
  Country: US (occurrence: None)
  Receive Date: 20240209
  Receipt Date: 20240209
  Transmission Date: 20240410
  Serious: No
  Sender: FDA-Public Use
  Company Number: None

PATIENT
  Age: 65 Year
  Sex: Female
  Weight: 62.1 kg

DRUGS (22)
  1. ROSUVASTATIN CALCIUM [Suspect]
     Active Substance: ROSUVASTATIN CALCIUM
     Indication: Hypercholesterolaemia
     Dosage: FREQUENCY : DAILY;?
     Route: 048
  2. INSULIN NOS [Concomitant]
     Active Substance: INSULIN NOS
  3. HUMALOG [Concomitant]
     Active Substance: INSULIN LISPRO
  4. RAMIPRIL [Concomitant]
     Active Substance: RAMIPRIL
  5. ESTRADIOL [Concomitant]
     Active Substance: ESTRADIOL
  6. Ultrafine Pen Needles [Concomitant]
  7. One Touch Verio Test Strips [Concomitant]
  8. Freestyle Libre 3 Glucose sensor [Concomitant]
  9. ALPHA LIPOIC ACID [Concomitant]
     Active Substance: .ALPHA.-LIPOIC ACID
  10. B complex with no B6 Biotin [Concomitant]
  11. Iron Bisglycinate Magnesium Vitamin C [Concomitant]
  12. ZINC [Concomitant]
     Active Substance: PYRITHIONE ZINC\ZINC\ZINC CHLORIDE
  13. VITAMIN D [Concomitant]
     Active Substance: VITAMIN D NOS
  14. Multi Vitamin Pycnogenol Ubiquinol Flaxseed Oil [Concomitant]
  15. FLAXSEED [Concomitant]
     Active Substance: FLAX SEED
  16. Brazil Nut for Selenium Mannose Cranberry [Concomitant]
  17. L. Acidophilous [Concomitant]
  18. L. Fernmemtum [Concomitant]
  19. L. Plantarum [Concomitant]
  20. B. Lactus [Concomitant]
  21. L. Reuteri [Concomitant]
  22. L. Rhamnosus [Concomitant]

REACTIONS (6)
  - Muscle spasms [None]
  - Neuropathy peripheral [None]
  - Back pain [None]
  - Blood glucose increased [None]
  - Abdominal discomfort [None]
  - Poor quality sleep [None]

NARRATIVE: CASE EVENT DATE: 20240127
